FAERS Safety Report 24327445 (Version 1)
Quarter: 2024Q3

REPORT INFORMATION
  Report Type: Spontaneous
  Country: US (occurrence: US)
  Receive Date: 20240917
  Receipt Date: 20240917
  Transmission Date: 20241017
  Serious: No
  Sender: SANDOZ
  Company Number: US-SANDOZ-SDZ2024US080564

PATIENT
  Age: 22 Year

DRUGS (1)
  1. HYRIMOZ [Suspect]
     Active Substance: ADALIMUMAB-ADAZ
     Indication: Crohn^s disease
     Dosage: 40 MG SOLUTION FOR INJECTION IN PRE-FILLED PEN
     Route: 058

REACTIONS (2)
  - Frequent bowel movements [Unknown]
  - Product dose omission issue [Unknown]
